FAERS Safety Report 8078350-X (Version None)
Quarter: 2012Q1

REPORT INFORMATION
  Report Type: 
  Country: None (occurrence: None)
  Receive Date: 20120123
  Receipt Date: 20120111
  Transmission Date: 20120608
  Serious: Yes (Death)
  Sender: FDA-Public Use
  Company Number: 1000027030

PATIENT
  Age: 29 Year
  Sex: Female

DRUGS (5)
  1. VIIBRYD [Suspect]
     Indication: DEPRESSION
     Dosage: 40 MG (40 MG,1 IN 1 D)
     Dates: start: 20110101, end: 20110101
  2. VIIBRYD [Suspect]
     Indication: DEPRESSION
     Dosage: 10 MG (10 MG,1 IN 1 D) ; 20 MG (20 MG,1 IN 1 D)
     Dates: start: 20111101, end: 20110101
  3. VIIBRYD [Suspect]
     Indication: DEPRESSION
     Dosage: 10 MG (10 MG,1 IN 1 D) ; 20 MG (20 MG,1 IN 1 D)
     Dates: start: 20110101, end: 20110101
  4. AMBIEN [Concomitant]
  5. WELLBUTRIN [Suspect]
     Dates: start: 20111228, end: 20111228

REACTIONS (2)
  - COMPLETED SUICIDE [None]
  - INTENTIONAL OVERDOSE [None]
